FAERS Safety Report 18627051 (Version 1)
Quarter: 2020Q4

REPORT INFORMATION
  Report Type: Spontaneous
  Country: DE (occurrence: DE)
  Receive Date: 20201217
  Receipt Date: 20201217
  Transmission Date: 20210114
  Serious: Yes (Other)
  Sender: FDA-Public Use
  Company Number: DE-AMGEN-DEUSP2020202685

PATIENT
  Sex: Female

DRUGS (4)
  1. FULVESTRANT. [Concomitant]
     Active Substance: FULVESTRANT
     Dosage: UNK
     Dates: start: 201701
  2. PALBOCICLIB [Concomitant]
     Active Substance: PALBOCICLIB
     Dosage: UNK
     Dates: start: 201701
  3. PALBOCICLIB [Concomitant]
     Active Substance: PALBOCICLIB
     Dosage: 100 MILLIGRAM
     Dates: start: 201703
  4. XGEVA [Suspect]
     Active Substance: DENOSUMAB
     Indication: PRODUCT USED FOR UNKNOWN INDICATION
     Dosage: UNK
     Route: 065
     Dates: end: 202002

REACTIONS (2)
  - Neutropenia [Unknown]
  - Osteonecrosis of jaw [Unknown]
